FAERS Safety Report 17455901 (Version 2)
Quarter: 2020Q4

REPORT INFORMATION
  Report Type: Report from Study
  Country: US (occurrence: US)
  Receive Date: 20200225
  Receipt Date: 20201214
  Transmission Date: 20210113
  Serious: Yes (Other)
  Sender: FDA-Public Use
  Company Number: US-TAKEDA-2020TUS010903

PATIENT
  Sex: Male

DRUGS (1)
  1. VORTIOXETINE. [Suspect]
     Active Substance: VORTIOXETINE
     Indication: PRODUCT USED FOR UNKNOWN INDICATION
     Dosage: 20 MILLIGRAM, QD
     Route: 048
     Dates: start: 20200210, end: 20200218

REACTIONS (2)
  - Product dose omission issue [Unknown]
  - Suicidal ideation [Unknown]
